FAERS Safety Report 24109802 (Version 1)
Quarter: 2024Q3

REPORT INFORMATION
  Report Type: Spontaneous
  Country: PL (occurrence: PL)
  Receive Date: 20240718
  Receipt Date: 20240718
  Transmission Date: 20241016
  Serious: Yes (Hospitalization)
  Sender: AMGEN
  Company Number: PL-AMGEN-POLSP2024139304

PATIENT
  Age: 15 Year
  Sex: Male
  Weight: 72 kg

DRUGS (1)
  1. NPLATE [Suspect]
     Active Substance: ROMIPLOSTIM
     Indication: Immune thrombocytopenia
     Dosage: 325 MICROGRAM, QWK (POWER: 250 MICROGRAM)
     Route: 058
     Dates: start: 20240307, end: 20240704

REACTIONS (4)
  - Intracranial pressure increased [Unknown]
  - Pseudopapilloedema [Unknown]
  - Headache [Unknown]
  - Optic nerve disorder [Unknown]
